FAERS Safety Report 6450081-9 (Version None)
Quarter: 2009Q4

REPORT INFORMATION
  Report Type: 
  Country: None (occurrence: None)
  Receive Date: 20091123
  Receipt Date: 20091112
  Transmission Date: 20100525
  Serious: Yes (Other)
  Sender: FDA-Public Use
  Company Number: US-WYE-H12140809

PATIENT
  Sex: Female

DRUGS (4)
  1. EFFEXOR XR [Suspect]
     Indication: MENOPAUSAL SYMPTOMS
     Route: 048
     Dates: start: 20080601, end: 20090601
  2. EFFEXOR XR [Suspect]
     Dosage: TAPERED OFF VERY SLOWLY UNDER HER DOCTOR'S CARE
     Route: 048
     Dates: start: 20090601, end: 20090901
  3. PRILOSEC [Concomitant]
     Indication: HIATUS HERNIA
     Dosage: UNKNOWN
  4. PRINIVIL [Concomitant]
     Indication: HYPERTENSION
     Dosage: UNKNOWN

REACTIONS (13)
  - CHILLS [None]
  - CONFUSIONAL STATE [None]
  - DIZZINESS [None]
  - FORMICATION [None]
  - HOT FLUSH [None]
  - IMPAIRED WORK ABILITY [None]
  - INSOMNIA [None]
  - MUSCLE SPASMS [None]
  - NAUSEA [None]
  - NEGATIVE THOUGHTS [None]
  - NERVOUS SYSTEM DISORDER [None]
  - SOCIAL AVOIDANT BEHAVIOUR [None]
  - TREMOR [None]
